FAERS Safety Report 22322560 (Version 1)
Quarter: 2023Q2

REPORT INFORMATION
  Report Type: Spontaneous
  Country: US (occurrence: US)
  Receive Date: 20230516
  Receipt Date: 20230516
  Transmission Date: 20230722
  Serious: No
  Sender: FDA-Public Use
  Company Number: US-CADILA HEALTHCARE LIMITED-US-ZYDUS-085513

PATIENT

DRUGS (4)
  1. BOSENTAN [Suspect]
     Active Substance: BOSENTAN
     Indication: Pulmonary arterial hypertension
     Dosage: 62.5 MILLIGRAM, BID
     Route: 048
     Dates: start: 20190703
  2. BOSENTAN [Suspect]
     Active Substance: BOSENTAN
     Dosage: 62.5 MILLIGRAM, BID
     Route: 048
     Dates: start: 20190703
  3. TYVASO [Concomitant]
     Active Substance: TREPROSTINIL
     Indication: Product used for unknown indication
     Dosage: UNK, UNK
     Route: 065
  4. TADALAFIL [Concomitant]
     Active Substance: TADALAFIL
     Indication: Product used for unknown indication
     Dosage: , QD
     Dates: start: 202210

REACTIONS (2)
  - Haemoptysis [Unknown]
  - Tongue haemorrhage [Unknown]

NARRATIVE: CASE EVENT DATE: 20221128
